FAERS Safety Report 18203964 (Version 1)
Quarter: 2020Q3

REPORT INFORMATION
  Report Type: Spontaneous
  Country: US (occurrence: US)
  Receive Date: 20200827
  Receipt Date: 20200827
  Transmission Date: 20201103
  Serious: Yes (Hospitalization)
  Sender: FDA-Public Use
  Company Number: US-SA-2020SA223111

PATIENT

DRUGS (1)
  1. LANTUS [Suspect]
     Active Substance: INSULIN GLARGINE
     Indication: TYPE 2 DIABETES MELLITUS
     Dosage: 10 UNITS AM AND 32 UNITS AT BEDTIME, BID
     Route: 065

REACTIONS (8)
  - Asthenia [Unknown]
  - Tremor [Unknown]
  - Hypoacusis [Unknown]
  - Blood glucose increased [Unknown]
  - Drug ineffective [Unknown]
  - Pyrexia [Unknown]
  - White blood cell count decreased [Unknown]
  - Inappropriate schedule of product administration [Unknown]
